FAERS Safety Report 7960888-4 (Version None)
Quarter: 2011Q4

REPORT INFORMATION
  Report Type: 
  Country: None (occurrence: None)
  Receive Date: 20111207
  Receipt Date: 20111128
  Transmission Date: 20120403
  Serious: Yes (Other)
  Sender: FDA-Public Use
  Company Number: US-RB-030773-11

PATIENT
  Sex: Male

DRUGS (1)
  1. DELSYM ADULT NIGHT TIME MULTI-SYMPTOM [Suspect]
     Indication: PRODUCT USED FOR UNKNOWN INDICATION
     Route: 048

REACTIONS (5)
  - FATIGUE [None]
  - APHONIA [None]
  - HEART RATE IRREGULAR [None]
  - STUPOR [None]
  - GAIT DISTURBANCE [None]
